FAERS Safety Report 10854470 (Version 1)
Quarter: 2015Q1

REPORT INFORMATION
  Report Type: Not Available
  Country: FR (occurrence: FR)
  Receive Date: 20150223
  Receipt Date: 20150223
  Transmission Date: 20150721
  Serious: Yes (Other)
  Sender: FDA-Public Use
  Company Number: FR-BEH-2015048941

PATIENT
  Age: 6 Year
  Sex: Male

DRUGS (14)
  1. CALCIDOSE [Concomitant]
     Active Substance: CALCIUM CARBONATE
  2. ELISOR [Concomitant]
     Active Substance: PRAVASTATIN SODIUM
  3. PRIVIGEN [Suspect]
     Active Substance: HUMAN IMMUNOGLOBULIN G
     Route: 042
     Dates: start: 20141210
  4. PRIVIGEN [Suspect]
     Active Substance: HUMAN IMMUNOGLOBULIN G
     Route: 042
     Dates: start: 20141126
  5. MODIGRAF [Concomitant]
     Active Substance: TACROLIMUS
  6. CELLCEPT [Concomitant]
     Active Substance: MYCOPHENOLATE MOFETIL\MYCOPHENOLATE MOFETIL HYDROCHLORIDE
  7. SOLUPRED [Concomitant]
     Active Substance: PREDNISOLONE
  8. PRIVIGEN [Suspect]
     Active Substance: HUMAN IMMUNOGLOBULIN G
     Route: 042
     Dates: start: 20141126
  9. UVESTEROL D [Concomitant]
     Dosage: 1500 IU/ML
     Route: 048
  10. PRIVIGEN [Suspect]
     Active Substance: HUMAN IMMUNOGLOBULIN G
     Indication: PARVOVIRUS B19 TEST POSITIVE
     Route: 042
     Dates: start: 20141203
  11. KARDEGIC [Concomitant]
     Active Substance: ASPIRIN LYSINE
  12. PRIVIGEN [Suspect]
     Active Substance: HUMAN IMMUNOGLOBULIN G
     Route: 042
     Dates: start: 20141203
  13. COVERSYL [Concomitant]
     Active Substance: PERINDOPRIL
  14. INEXIUM [Concomitant]
     Active Substance: ESOMEPRAZOLE

REACTIONS (7)
  - Vomiting [Recovered/Resolved]
  - Diarrhoea [Recovered/Resolved]
  - Gastrointestinal disorder [Recovered/Resolved]
  - Pyrexia [Recovered/Resolved]
  - Abdominal pain [Recovered/Resolved]
  - Headache [Recovered/Resolved]
  - Vomiting [Recovered/Resolved]

NARRATIVE: CASE EVENT DATE: 20141127
